FAERS Safety Report 9649279 (Version 1)
Quarter: 2013Q4

REPORT INFORMATION
  Report Type: Spontaneous
  Country: FR (occurrence: FR)
  Receive Date: 20131028
  Receipt Date: 20131028
  Transmission Date: 20140711
  Serious: Yes (Hospitalization)
  Sender: FDA-Public Use
  Company Number: FR-GLAXOSMITHKLINE-B0935542A

PATIENT
  Age: 25 Year
  Sex: Female

DRUGS (3)
  1. ZOPHREN [Suspect]
     Indication: PREMEDICATION
     Dosage: 8MG CYCLIC
     Route: 042
     Dates: start: 20130816, end: 20130816
  2. CAELYX [Suspect]
     Indication: OVARIAN EPITHELIAL CANCER
     Dosage: 40MGM2 CYCLIC
     Route: 042
     Dates: start: 20130816, end: 20130816
  3. SOLUMEDROL [Suspect]
     Indication: PREMEDICATION
     Dosage: 40MG CYCLIC
     Route: 042
     Dates: start: 20130816, end: 20130816

REACTIONS (8)
  - Malaise [Recovered/Resolved]
  - Dyspnoea [Recovered/Resolved]
  - Tachycardia [Recovered/Resolved]
  - Livedo reticularis [Recovered/Resolved]
  - Chest discomfort [Recovered/Resolved]
  - Urinary incontinence [Recovered/Resolved]
  - Generalised erythema [Recovered/Resolved]
  - Oxygen saturation decreased [Recovered/Resolved]
